FAERS Safety Report 4756162-X (Version None)
Quarter: 2005Q3

REPORT INFORMATION
  Report Type: 
  Country: None (occurrence: None)
  Receive Date: 20050829
  Receipt Date: 20050829
  Transmission Date: 20060218
  Serious: Yes (Life-Threatening, Disabling, Other)
  Sender: FDA-Public Use
  Company Number: None

PATIENT
  Age: 52 Year
  Sex: Female
  Weight: 61.2356 kg

DRUGS (3)
  1. LORAZEPAM [Suspect]
     Indication: ANXIETY
     Dosage: .5MG   1 TO 3X PER DAY   PO
     Route: 048
     Dates: start: 19990918, end: 20040301
  2. LORAZEPAM [Suspect]
     Indication: SOMNOLENCE
     Dosage: .5MG   1 TO 3X PER DAY   PO
     Route: 048
     Dates: start: 19990918, end: 20040301
  3. KLONOPIN [Suspect]
     Indication: DRUG WITHDRAWAL SYNDROME
     Dosage: .50MG   1 TWICE PER DAY   PO
     Route: 048
     Dates: start: 20040401, end: 20050826

REACTIONS (13)
  - ASTHENIA [None]
  - BONE PAIN [None]
  - DIFFICULTY IN WALKING [None]
  - DRUG DEPENDENCE [None]
  - DRUG WITHDRAWAL SYNDROME [None]
  - LARYNGOSPASM [None]
  - MUSCLE RIGIDITY [None]
  - MUSCLE SPASMS [None]
  - MUSCLE TWITCHING [None]
  - MYALGIA [None]
  - NERVOUS SYSTEM DISORDER [None]
  - NEUROMYOPATHY [None]
  - STRESS [None]
